FAERS Safety Report 8624322-3 (Version None)
Quarter: 2012Q3

REPORT INFORMATION
  Report Type: 
  Country: None (occurrence: None)
  Receive Date: 20120827
  Receipt Date: 20120814
  Transmission Date: 20120928
  Serious: No
  Sender: FDA-Public Use
  Company Number: US-ASTRAZENECA-2012SE51658

PATIENT
  Age: 54 Year
  Sex: Male

DRUGS (4)
  1. NEXIUM [Suspect]
     Route: 048
  2. ZANTAC [Concomitant]
  3. CALCIUM CARBONATE [Concomitant]
  4. PREVACID [Concomitant]

REACTIONS (5)
  - MALAISE [None]
  - HERNIA [None]
  - DRUG DOSE OMISSION [None]
  - GASTROOESOPHAGEAL REFLUX DISEASE [None]
  - VOMITING [None]
